FAERS Safety Report 19602223 (Version 1)
Quarter: 2021Q3

REPORT INFORMATION
  Report Type: Report from Study
  Country: None (occurrence: BR)
  Receive Date: 20210723
  Receipt Date: 20210723
  Transmission Date: 20211014
  Serious: Yes (Death, Life-Threatening, Hospitalization, Other)
  Sender: FDA-Public Use
  Company Number: BR-ABBVIE-21K-020-4005201-00

PATIENT
  Age: 58 Year
  Sex: Female

DRUGS (1)
  1. HUMIRA [Suspect]
     Active Substance: ADALIMUMAB
     Indication: CROHN^S DISEASE
     Dosage: UNSPECIFIED DOSE
     Route: 058
     Dates: start: 20180710

REACTIONS (15)
  - Septic shock [Fatal]
  - Gastrointestinal inflammation [Recovered/Resolved]
  - Urinary tract infection [Unknown]
  - Dyspnoea [Unknown]
  - Pulmonary sepsis [Fatal]
  - Cardio-respiratory arrest [Unknown]
  - Fatigue [Recovered/Resolved]
  - Obesity [Fatal]
  - Enterocutaneous fistula [Unknown]
  - Malaise [Unknown]
  - Intestinal perforation [Recovered/Resolved]
  - Pneumonia [Fatal]
  - Dyspnoea [Recovered/Resolved]
  - Proctocolectomy [Fatal]
  - Urinary retention [Unknown]

NARRATIVE: CASE EVENT DATE: 20200719
